FAERS Safety Report 25849649 (Version 1)
Quarter: 2025Q3

REPORT INFORMATION
  Report Type: Spontaneous
  Country: EU (occurrence: EU)
  Receive Date: 20250926
  Receipt Date: 20250926
  Transmission Date: 20251020
  Serious: Yes (Hospitalization)
  Sender: TEVA
  Company Number: None

PATIENT
  Age: 35 Year
  Sex: Male
  Weight: 44 kg

DRUGS (6)
  1. QUETIAPINE [Suspect]
     Active Substance: QUETIAPINE
     Indication: Psychomotor hyperactivity
     Route: 048
     Dates: start: 20250630, end: 20250719
  2. QUETIAPINE [Suspect]
     Active Substance: QUETIAPINE
     Indication: Psychomotor hyperactivity
     Route: 048
     Dates: start: 20250720, end: 20250722
  3. MIRTAZAPINE [Suspect]
     Active Substance: MIRTAZAPINE
     Indication: Psychomotor hyperactivity
     Route: 048
     Dates: start: 20250615, end: 20250722
  4. LOXAPINE [Suspect]
     Active Substance: LOXAPINE
     Indication: Psychomotor hyperactivity
     Route: 048
     Dates: start: 202506, end: 20250720
  5. VALPROATE SODIUM [Suspect]
     Active Substance: VALPROATE SODIUM
     Indication: Epilepsy
     Route: 048
     Dates: start: 20250702
  6. VALPROATE SODIUM [Suspect]
     Active Substance: VALPROATE SODIUM
     Indication: Epilepsy
     Route: 048
     Dates: end: 20250701

REACTIONS (3)
  - Extrapyramidal disorder [Recovering/Resolving]
  - Mydriasis [Recovered/Resolved]
  - Altered state of consciousness [Recovered/Resolved]

NARRATIVE: CASE EVENT DATE: 20250719
